FAERS Safety Report 11415902 (Version 1)
Quarter: 2015Q3

REPORT INFORMATION
  Report Type: Spontaneous
  Country: US (occurrence: None)
  Receive Date: 20150824
  Receipt Date: 20150824
  Transmission Date: 20151125
  Serious: Yes (Life-Threatening)
  Sender: FDA-Public Use
  Company Number: None

PATIENT
  Age: 53 Year
  Sex: Female
  Weight: 54.43 kg

DRUGS (9)
  1. KLONIPIN [Concomitant]
     Active Substance: CLONAZEPAM
  2. CYMBALTA [Suspect]
     Active Substance: DULOXETINE HYDROCHLORIDE
     Indication: ANXIETY
     Route: 048
     Dates: start: 20150605, end: 20150819
  3. LAMICTAL [Concomitant]
     Active Substance: LAMOTRIGINE
  4. AMLODIPINE [Concomitant]
     Active Substance: AMLODIPINE BESYLATE
  5. RESTORIL [Concomitant]
     Active Substance: TEMAZEPAM
  6. TYLENOL [Concomitant]
     Active Substance: ACETAMINOPHEN
  7. ATENOLOL. [Concomitant]
     Active Substance: ATENOLOL
  8. LEFLUNIMIDE [Concomitant]
  9. METHOTREXATE [Concomitant]
     Active Substance: METHOTREXATE

REACTIONS (8)
  - Suicide attempt [None]
  - Mania [None]
  - Diarrhoea [None]
  - Feeling jittery [None]
  - Weight decreased [None]
  - Nausea [None]
  - Decreased appetite [None]
  - Drug interaction [None]

NARRATIVE: CASE EVENT DATE: 20150819
